APPROVED DRUG PRODUCT: TOREMIFENE CITRATE
Active Ingredient: TOREMIFENE CITRATE
Strength: EQ 60MG BASE
Dosage Form/Route: TABLET;ORAL
Application: A208813 | Product #001 | TE Code: AB
Applicant: RISING PHARMA HOLDINGS INC
Approved: Dec 4, 2018 | RLD: No | RS: Yes | Type: RX